FAERS Safety Report 5547547-2 (Version None)
Quarter: 2007Q4

REPORT INFORMATION
  Report Type: 
  Country: None (occurrence: None)
  Receive Date: 20071211
  Receipt Date: 20070226
  Transmission Date: 20080405
  Serious: No
  Sender: FDA-Public Use
  Company Number: US-AMGEN-KDL210114

PATIENT
  Sex: Female

DRUGS (4)
  1. ENBREL [Suspect]
     Indication: RHEUMATOID ARTHRITIS
     Route: 058
     Dates: start: 20041001, end: 20061229
  2. CLOBETASOL PROPIONATE [Suspect]
     Route: 061
  3. AMLODIPINE BESYLATE [Concomitant]
  4. METHOTREXATE [Concomitant]

REACTIONS (1)
  - PUSTULAR PSORIASIS [None]
